FAERS Safety Report 7551348-3 (Version None)
Quarter: 2011Q2

REPORT INFORMATION
  Report Type: 
  Country: None (occurrence: None)
  Receive Date: 20110616
  Receipt Date: 20110610
  Transmission Date: 20111010
  Serious: Yes (Other)
  Sender: FDA-Public Use
  Company Number: CA-PFIZER INC-2011127601

PATIENT
  Age: 86 Year
  Sex: Female

DRUGS (1)
  1. XALATAN [Suspect]
     Indication: GLAUCOMA
     Dosage: 1 DROP IN BOTH EYES, 1X/DAY
     Route: 047

REACTIONS (1)
  - CATARACT OPERATION [None]
